FAERS Safety Report 9535789 (Version 2)
Quarter: 2013Q3

REPORT INFORMATION
  Report Type: Spontaneous
  Country: US (occurrence: US)
  Receive Date: 20130919
  Receipt Date: 20130927
  Transmission Date: 20140515
  Serious: Yes (Other)
  Sender: FDA-Public Use
  Company Number: US-JNJFOC-20130904892

PATIENT
  Sex: Male

DRUGS (1)
  1. LISTERINE MOUTHWASH UNSPECIFIED [Suspect]
     Indication: PRODUCT USED FOR UNKNOWN INDICATION
     Dosage: 1/4TH AMOUNT OF BOTTLE
     Route: 048

REACTIONS (2)
  - Poor quality drug administered [Unknown]
  - Diarrhoea [Unknown]
